FAERS Safety Report 4712855-1 (Version None)
Quarter: 2005Q3

REPORT INFORMATION
  Report Type: 
  Country: None (occurrence: None)
  Receive Date: 20050712
  Receipt Date: 20050712
  Transmission Date: 20060218
  Serious: Yes (Hospitalization)
  Sender: FDA-Public Use
  Company Number: None

PATIENT
  Sex: Male

DRUGS (11)
  1. CLINDAMYCIN 150 MG [Suspect]
     Indication: PROPHYLAXIS
     Dosage: 150 MG Q 6 HR ORAL
     Route: 048
     Dates: start: 20041210, end: 20041216
  2. POTASSIUM CHLORIDE [Concomitant]
  3. FUROSEMIDE [Concomitant]
  4. METOPROLOL [Concomitant]
  5. DIPHENHYDRAMINE HCL [Concomitant]
  6. ASPIRIN [Concomitant]
  7. RABEPRAZOLE SODIUM [Concomitant]
  8. SIMVASTATIN [Concomitant]
  9. CLOPIDOGREL BISULFATE [Concomitant]
  10. SERTRALINE [Concomitant]
  11. CLONIDINE [Concomitant]

REACTIONS (1)
  - CLOSTRIDIUM COLITIS [None]
